FAERS Safety Report 9731147 (Version 1)
Quarter: 2013Q4

REPORT INFORMATION
  Report Type: Spontaneous
  Country: US (occurrence: US)
  Receive Date: 20131203
  Receipt Date: 20131203
  Transmission Date: 20140711
  Serious: Yes (Other)
  Sender: FDA-Public Use
  Company Number: US-ASTRAZENECA-2013SE86753

PATIENT
  Sex: Female

DRUGS (5)
  1. ARIMIDEX [Suspect]
     Indication: INVASIVE DUCTAL BREAST CARCINOMA
     Route: 048
  2. CHEMO DRUGS [Concomitant]
  3. CARDIAC MEDICATIONS [Concomitant]
  4. BLOOD PRESSURE MEDICATIONS [Concomitant]
  5. HORMONAL MEDICATIONS [Concomitant]

REACTIONS (3)
  - Metastatic neoplasm [Unknown]
  - Cerebrovascular accident [Unknown]
  - Memory impairment [Unknown]
